FAERS Safety Report 14963414 (Version 2)
Quarter: 2018Q2

REPORT INFORMATION
  Report Type: Spontaneous
  Country: US (occurrence: US)
  Receive Date: 20180601
  Receipt Date: 20180620
  Transmission Date: 20180711
  Serious: No
  Sender: FDA-Public Use
  Company Number: US-CELGENEUS-USA-20180510820

PATIENT
  Age: 50 Year
  Sex: Male

DRUGS (7)
  1. APREMILAST [Suspect]
     Active Substance: APREMILAST
     Dosage: 40 MILLIGRAM (DAY 7 , 8)
     Route: 048
     Dates: start: 201805
  2. APREMILAST [Suspect]
     Active Substance: APREMILAST
     Dosage: 50 MILLIGRAM (DAY 9 , 10)
     Route: 048
     Dates: start: 201805
  3. APREMILAST [Suspect]
     Active Substance: APREMILAST
     Dosage: 60 MILLIGRAM
     Route: 048
     Dates: start: 20180517, end: 20180523
  4. APREMILAST [Suspect]
     Active Substance: APREMILAST
     Dosage: 20 MILLIGRAM (DAY 3 ,4)
     Route: 048
     Dates: start: 201805
  5. ENSTILAR FOAM [Concomitant]
     Indication: PSORIASIS
     Route: 065
     Dates: start: 20180502
  6. APREMILAST [Suspect]
     Active Substance: APREMILAST
     Indication: PSORIASIS
     Dosage: 10 MILLIGRAM (DAY 1, 2)
     Route: 048
     Dates: start: 20180503
  7. APREMILAST [Suspect]
     Active Substance: APREMILAST
     Dosage: 30 MILLIGRAM (DAY 5 , 6)
     Route: 048
     Dates: start: 201805

REACTIONS (3)
  - Joint swelling [Recovering/Resolving]
  - Arthralgia [Recovered/Resolved]
  - Gait inability [Unknown]

NARRATIVE: CASE EVENT DATE: 201805
